FAERS Safety Report 21904123 (Version 1)
Quarter: 2023Q1

REPORT INFORMATION
  Report Type: Spontaneous
  Country: US (occurrence: None)
  Receive Date: 20230123
  Receipt Date: 20230123
  Transmission Date: 20230417
  Serious: No
  Sender: FDA-Public Use
  Company Number: None

PATIENT
  Age: 72 Year
  Sex: Male
  Weight: 96.25 kg

DRUGS (15)
  1. HYCAMTIN [Suspect]
     Active Substance: TOPOTECAN HYDROCHLORIDE
     Indication: Neuroendocrine tumour
     Dosage: FREQUENCY : DAILY;?
     Route: 048
  2. CLINDAMYCIN [Concomitant]
     Active Substance: CLINDAMYCIN
  3. FENOFIBRATE [Concomitant]
     Active Substance: FENOFIBRATE
  4. HYDROCHLOROTHIAZIDE [Concomitant]
     Active Substance: HYDROCHLOROTHIAZIDE
  5. NORCO [Concomitant]
     Active Substance: ACETAMINOPHEN\HYDROCODONE BITARTRATE
  6. IRBESARTAN [Concomitant]
     Active Substance: IRBESARTAN
  7. LORAZEPAM [Concomitant]
     Active Substance: LORAZEPAM
  8. NIACIN [Concomitant]
     Active Substance: NIACIN
  9. METFORMIN [Concomitant]
     Active Substance: METFORMIN HYDROCHLORIDE
  10. ONDANSETRON [Concomitant]
     Active Substance: ONDANSETRON
  11. PAROXETINE [Concomitant]
     Active Substance: PAROXETINE
  12. POTASSIUM CHLORIDE [Concomitant]
     Active Substance: POTASSIUM CHLORIDE
  13. PROCHLORPERAZINE [Concomitant]
     Active Substance: PROCHLORPERAZINE
  14. SIMVASTATIN [Concomitant]
     Active Substance: SIMVASTATIN
  15. TRAZODONE [Concomitant]
     Active Substance: TRAZODONE HYDROCHLORIDE

REACTIONS (2)
  - Neutropenia [None]
  - Fall [None]
